FAERS Safety Report 20895715 (Version 1)
Quarter: 2022Q2

REPORT INFORMATION
  Report Type: Spontaneous
  Country: US (occurrence: None)
  Receive Date: 20220531
  Receipt Date: 20220531
  Transmission Date: 20220720
  Serious: No
  Sender: FDA-Public Use
  Company Number: None

PATIENT
  Age: 54 Year
  Sex: Female

DRUGS (1)
  1. XELJANZ XR [Suspect]
     Active Substance: TOFACITINIB CITRATE
     Indication: Spondylitis
     Dosage: 11MG ONCE DAILY ORAL?
     Route: 048
     Dates: start: 20220502

REACTIONS (5)
  - Therapy non-responder [None]
  - Condition aggravated [None]
  - Myalgia [None]
  - Arthralgia [None]
  - Inflammation [None]

NARRATIVE: CASE EVENT DATE: 20220405
